FAERS Safety Report 5232832-4 (Version None)
Quarter: 2007Q1

REPORT INFORMATION
  Report Type: 
  Country: None (occurrence: None)
  Receive Date: 20070206
  Receipt Date: 20070206
  Transmission Date: 20070707
  Serious: No
  Sender: FDA-Public Use
  Company Number: None

PATIENT
  Sex: Male
  Weight: 85.503 kg

DRUGS (1)
  1. MOXIFLOXACIN HCL [Suspect]
     Indication: OPEN WOUND
     Dosage: 400MG INTRACAVERN
     Route: 017

REACTIONS (1)
  - PRURITUS GENERALISED [None]
